FAERS Safety Report 4764382-3 (Version None)
Quarter: 2005Q3

REPORT INFORMATION
  Report Type: 
  Country: None (occurrence: None)
  Receive Date: 20050906
  Receipt Date: 20050826
  Transmission Date: 20060218
  Serious: Yes (Hospitalization, Other)
  Sender: FDA-Public Use
  Company Number: KII-2005-0018396

PATIENT
  Age: 51 Year
  Sex: Male

DRUGS (11)
  1. MORPHINE SULFATE [Suspect]
     Dosage: UNK, ORAL
     Route: 048
  2. METHADONE HCL [Suspect]
     Dosage: UNK, ORAL
     Route: 048
  3. DILTIAZEM [Concomitant]
  4. LITHIUM CARBONATE [Concomitant]
  5. MONTELUKAST (MONTELUKAST) [Concomitant]
  6. ALBUTEROL [Concomitant]
  7. ANTICHOLINERGICS [Concomitant]
  8. ASPIRIN [Concomitant]
  9. NITROGLYCERIN [Concomitant]
  10. ACETAMINOPHEN AND OXYCODONE HCL [Concomitant]
  11. VALSARTAN [Concomitant]

REACTIONS (6)
  - BACK PAIN [None]
  - BLOOD PH DECREASED [None]
  - COMA [None]
  - POLYSUBSTANCE ABUSE [None]
  - RESPIRATORY DEPRESSION [None]
  - THEFT [None]
